FAERS Safety Report 9760039 (Version 2)
Quarter: 2014Q1

REPORT INFORMATION
  Report Type: Spontaneous
  Country: GB (occurrence: GB)
  Receive Date: 20131216
  Receipt Date: 20140124
  Transmission Date: 20141002
  Serious: Yes (Other)
  Sender: FDA-Public Use
  Company Number: GB-WATSON-2013-22896

PATIENT
  Age: 32 Year
  Sex: Female

DRUGS (9)
  1. HALOPERIDOL (UNKNOWN) [Suspect]
     Indication: SCHIZOPHRENIA, PARANOID TYPE
     Dosage: 5 MG, BID
     Route: 048
     Dates: start: 20111229, end: 20120104
  2. HALOPERIDOL (UNKNOWN) [Suspect]
     Dosage: 5 MG, TID
     Route: 048
     Dates: start: 20120105, end: 20120109
  3. CHLORPROMAZINE HYDROCHLORIDE (WATSON LABORATORIES) [Suspect]
     Indication: SCHIZOPHRENIA, PARANOID TYPE
     Dosage: 25 MG, TID; DOSAGE FORM TABLETS
     Route: 065
     Dates: start: 20111215, end: 20111219
  4. CHLORPROMAZINE HYDROCHLORIDE (WATSON LABORATORIES) [Suspect]
     Dosage: 200 MG, TID; DOSAGE FORM: TABLETS
     Route: 065
     Dates: start: 20120109, end: 20120114
  5. ZOPICLONE (UNKNOWN) [Suspect]
     Indication: INSOMNIA
     Dosage: 15 MG, UNKNOWN AT NIGHT; DOSAGE FORM: TABLETS
     Route: 065
     Dates: start: 20120210, end: 20120718
  6. RISPERDAL [Suspect]
     Indication: SCHIZOPHRENIA, PARANOID TYPE
     Dosage: 3 MG MORNING AND 4 MG (AT NIGHT)
     Route: 048
     Dates: start: 20120221, end: 20120307
  7. RISPERDAL [Suspect]
     Dosage: 3 MG, BID
     Route: 048
     Dates: start: 20120308, end: 20120609
  8. RISPERDAL [Suspect]
     Dosage: 6 MG, QAM
     Route: 048
     Dates: start: 20120609, end: 20120821
  9. PROMETHAZINE [Concomitant]
     Indication: PRODUCT USED FOR UNKNOWN INDICATION
     Dosage: 25 MG, BID; DOSAGE FORM: UNSPECIFIED, PRN
     Route: 065
     Dates: start: 20111216

REACTIONS (3)
  - Schizoaffective disorder [Unknown]
  - Blood iron decreased [Unknown]
  - Exposure during pregnancy [Recovered/Resolved]
